FAERS Safety Report 6335322-0 (Version None)
Quarter: 2009Q3

REPORT INFORMATION
  Report Type: 
  Country: None (occurrence: None)
  Receive Date: 20090831
  Receipt Date: 20090821
  Transmission Date: 20100115
  Serious: Yes (Hospitalization)
  Sender: FDA-Public Use
  Company Number: JP-JNJFOC-20090201543

PATIENT
  Sex: Male
  Weight: 21.6 kg

DRUGS (18)
  1. REMICADE [Suspect]
     Route: 042
  2. REMICADE [Suspect]
     Route: 042
  3. REMICADE [Suspect]
     Route: 042
  4. REMICADE [Suspect]
     Dosage: 2ND AND 3RD INFUSION ON UNKNOWN DATES
     Route: 042
  5. REMICADE [Suspect]
     Indication: CROHN'S DISEASE
     Dosage: RECEIVED 3 INFUSIONS
     Route: 042
  6. METHOTREXATE [Suspect]
     Indication: CONGENITAL ECTODERMAL DYSPLASIA
     Route: 048
  7. PREDNISOLONE [Suspect]
     Indication: CONGENITAL ECTODERMAL DYSPLASIA
     Route: 048
  8. NEORAL [Suspect]
     Indication: CONGENITAL ECTODERMAL DYSPLASIA
     Route: 048
  9. BAKTAR [Concomitant]
     Indication: CONGENITAL ECTODERMAL DYSPLASIA
     Route: 048
  10. ONEALFA [Concomitant]
     Indication: OSTEOPOROSIS PROPHYLAXIS
     Dosage: DOSAGE = 0.1 RG/DAY
     Route: 048
  11. PROMAC [Concomitant]
     Route: 048
  12. GASTER [Concomitant]
     Indication: PROPHYLAXIS AGAINST GASTROINTESTINAL ULCER
     Route: 048
  13. PENTASA [Concomitant]
     Indication: CROHN'S DISEASE
     Route: 048
  14. DIFLUCAN [Concomitant]
     Indication: CONGENITAL ECTODERMAL DYSPLASIA
     Route: 048
  15. ENTERONON-R [Concomitant]
     Indication: CROHN'S DISEASE
     Route: 048
  16. LONGES [Concomitant]
     Indication: HYPERTENSION
     Route: 048
  17. NORVASC [Concomitant]
     Indication: HYPERTENSION
     Route: 048
  18. POSTERISAN [Concomitant]
     Indication: HAEMORRHOIDS
     Route: 048

REACTIONS (2)
  - BLOOD CULTURE POSITIVE [None]
  - PNEUMONIA [None]
